FAERS Safety Report 13438974 (Version 3)
Quarter: 2017Q4

REPORT INFORMATION
  Report Type: Spontaneous
  Country: KR (occurrence: KR)
  Receive Date: 20170413
  Receipt Date: 20171130
  Transmission Date: 20180320
  Serious: Yes (Death, Hospitalization, Other)
  Sender: FDA-Public Use
  Company Number: KR-009507513-1704KOR005100

PATIENT
  Age: 69 Year
  Sex: Male
  Weight: 64.9 kg

DRUGS (3)
  1. NOXAFIL [Suspect]
     Active Substance: POSACONAZOLE
     Dosage: 300 MG, ONCE A DAY
     Route: 048
     Dates: start: 20170221, end: 20170407
  2. NOXAFIL [Suspect]
     Active Substance: POSACONAZOLE
     Indication: ANTIFUNGAL PROPHYLAXIS
     Dosage: 300 MG, TWICE A DAY
     Route: 048
     Dates: start: 20170220, end: 20170220
  3. VIVIR (ACYCLOVIR) [Concomitant]
     Indication: INFECTION PROPHYLAXIS
     Dosage: 400 MG, TWICE A DAY
     Route: 048
     Dates: start: 20170220, end: 20170407

REACTIONS (1)
  - Septic shock [Fatal]

NARRATIVE: CASE EVENT DATE: 20170407
